FAERS Safety Report 9244288 (Version 1)
Quarter: 2013Q1

REPORT INFORMATION
  Report Type: Spontaneous
  Country: US (occurrence: None)
  Receive Date: 20121123
  Receipt Date: 20121123
  Transmission Date: 20140127
  Serious: No
  Sender: FDA-Public Use
  Company Number: 361797

PATIENT
  Sex: Female

DRUGS (4)
  1. VICTOZA [Suspect]
     Route: 058
  2. SPIRIVA [Suspect]
  3. LANTUS (INSULIN GLARGINE) [Concomitant]
  4. HUMALOG (INSULIN LISPRO) [Concomitant]

REACTIONS (3)
  - Fatigue [None]
  - Pain [None]
  - Malaise [None]
